FAERS Safety Report 25467374 (Version 1)
Quarter: 2025Q2

REPORT INFORMATION
  Report Type: Spontaneous
  Country: DE (occurrence: DE)
  Receive Date: 20250623
  Receipt Date: 20250623
  Transmission Date: 20250717
  Serious: Yes (Hospitalization, Other)
  Sender: Unknown Manufacturer
  Company Number: DE-TEVA-VS-3337645

PATIENT

DRUGS (4)
  1. METOPROLOL SUCCINATE [Interacting]
     Active Substance: METOPROLOL SUCCINATE
     Indication: Pulse abnormal
     Route: 065
  2. METOPROLOL SUCCINATE [Interacting]
     Active Substance: METOPROLOL SUCCINATE
     Indication: Nasopharyngitis
  3. ECHINACEA [Interacting]
     Active Substance: ECHINACEA, UNSPECIFIED
     Indication: Pulse abnormal
     Route: 065
  4. ECHINACEA [Interacting]
     Active Substance: ECHINACEA, UNSPECIFIED
     Indication: Nasopharyngitis

REACTIONS (2)
  - Atrial fibrillation [Unknown]
  - Drug interaction [Recovered/Resolved]
